FAERS Safety Report 6097626-9 (Version None)
Quarter: 2009Q1

REPORT INFORMATION
  Report Type: 
  Country: None (occurrence: None)
  Receive Date: 20090225
  Receipt Date: 20090225
  Transmission Date: 20090719
  Serious: No
  Sender: FDA-Public Use
  Company Number: None

PATIENT
  Age: 58 Year
  Sex: Female
  Weight: 92.9874 kg

DRUGS (2)
  1. CIPRO [Suspect]
     Indication: BRONCHITIS
     Dosage: 500 MG BID PO
     Route: 048
     Dates: start: 20090218, end: 20090220
  2. CIPRO [Suspect]
     Indication: MUCOSAL DISCOLOURATION
     Dosage: 500 MG BID PO
     Route: 048
     Dates: start: 20090218, end: 20090220

REACTIONS (21)
  - ABDOMINAL PAIN UPPER [None]
  - ABNORMAL DREAMS [None]
  - ARTHRALGIA [None]
  - ASTHENIA [None]
  - BLOOD GLUCOSE INCREASED [None]
  - BLOOD PRESSURE INCREASED [None]
  - DIARRHOEA [None]
  - DRY MOUTH [None]
  - DYSPNOEA [None]
  - GASTROINTESTINAL DISORDER [None]
  - HEADACHE [None]
  - INSOMNIA [None]
  - MOOD SWINGS [None]
  - MUSCLE SPASMS [None]
  - MUSCULOSKELETAL CHEST PAIN [None]
  - NAUSEA [None]
  - NO REACTION ON PREVIOUS EXPOSURE TO DRUG [None]
  - PAIN [None]
  - STOMATITIS [None]
  - THINKING ABNORMAL [None]
  - VOMITING [None]
